FAERS Safety Report 9026481 (Version 3)
Quarter: 2013Q2

REPORT INFORMATION
  Report Type: Spontaneous
  Country: JP (occurrence: None)
  Receive Date: 20130110
  Receipt Date: 20130510
  Transmission Date: 20140414
  Serious: Yes (Hospitalization)
  Sender: FDA-Public Use
  Company Number: 0234883

PATIENT
  Age: 66 Year
  Sex: Female

DRUGS (8)
  1. TACHOSIL [Suspect]
     Indication: PROPHYLAXIS
     Dosage: 1 SHEET OF SMALL SIZE
     Dates: start: 20121120, end: 20121120
  2. LANSOPRAZOLE (LANSOPRAZOLE) [Concomitant]
  3. HYDROCHLORIDE (DIFENIDOL HYDROCHLORIDE) [Concomitant]
  4. MENATETRENONE (MENATETRENONE) [Concomitant]
  5. LOXOPROFEN (LOXOPROFEN) [Concomitant]
  6. REBAMIPIDE (REBAMIPIDE) [Concomitant]
  7. CELECOXIB (CELECOXIB) [Concomitant]
  8. BOLHEAL [Concomitant]

REACTIONS (5)
  - Infectious pleural effusion [None]
  - Staphylococcal infection [None]
  - Pneumonia [None]
  - Blood lactate dehydrogenase increased [None]
  - Blood alkaline phosphatase increased [None]
